FAERS Safety Report 10964003 (Version 2)
Quarter: 2015Q2

REPORT INFORMATION
  Report Type: Spontaneous
  Country: US (occurrence: US)
  Receive Date: 20150328
  Receipt Date: 20150524
  Transmission Date: 20150821
  Serious: No
  Sender: FDA-Public Use
  Company Number: US-JNJFOC-20140118960

PATIENT
  Sex: Female

DRUGS (1)
  1. DURAGESIC [Suspect]
     Active Substance: FENTANYL
     Indication: PRODUCT USED FOR UNKNOWN INDICATION
     Route: 062

REACTIONS (6)
  - Feeling of body temperature change [Unknown]
  - Constipation [Unknown]
  - Dizziness [Unknown]
  - Drug screen negative [Unknown]
  - Somnolence [Unknown]
  - Drug ineffective [Unknown]
